FAERS Safety Report 7228947 (Version 3)
Quarter: 2012Q4

REPORT INFORMATION
  Report Type: 
  Country: US (occurrence: US)
  Receive Date: 20091223
  Receipt Date: 20121226
  Transmission Date: 20130627
  Serious: No
  Sender: FDA-Public Use
  Company Number: US-ABBOTT-09P-163-0601840-00

PATIENT
  Age: 79 None
  Sex: Male
  Weight: 93.07 kg

DRUGS (5)
  1. LUPRON DEPOT 30 MG [Suspect]
     Indication: PROSTATE CANCER
     Dosage: 1 in 1.5 Years, intermittently
     Dates: start: 2005
  2. LUPRON DEPOT 30 MG [Suspect]
     Dosage: 1 in 1.5 Years
  3. LUPRON DEPOT 22.5 MG [Suspect]
     Indication: PROSTATE CANCER
     Route: 050
     Dates: start: 2006, end: 20100208
  4. LUPRON DEPOT 22.5 MG [Suspect]
     Indication: PROSTATIC SPECIFIC ANTIGEN INCREASED
     Route: 050
     Dates: start: 20100208
  5. LUPRON DEPOT 22.5 MG [Suspect]
     Indication: HORMONE REPLACEMENT THERAPY

REACTIONS (16)
  - Incorrect drug administration duration [Not Recovered/Not Resolved]
  - Fatigue [Not Recovered/Not Resolved]
  - Pain [Not Recovered/Not Resolved]
  - Headache [Not Recovered/Not Resolved]
  - Hot flush [Not Recovered/Not Resolved]
  - Libido decreased [Not Recovered/Not Resolved]
  - Blood cholesterol increased [Not Recovered/Not Resolved]
  - Neuropathy peripheral [Not Recovered/Not Resolved]
  - Arthralgia [Not Recovered/Not Resolved]
  - Erectile dysfunction [Not Recovered/Not Resolved]
  - Asthenia [Not Recovered/Not Resolved]
  - Fatigue [Not Recovered/Not Resolved]
  - Testicular atrophy [Not Recovered/Not Resolved]
  - Prostatic specific antigen increased [Not Recovered/Not Resolved]
  - Gait disturbance [Not Recovered/Not Resolved]
  - Off label use [Not Recovered/Not Resolved]
